FAERS Safety Report 5446803-6 (Version None)
Quarter: 2007Q3

REPORT INFORMATION
  Report Type: 
  Country: None (occurrence: None)
  Receive Date: 20070907
  Receipt Date: 20070828
  Transmission Date: 20080115
  Serious: Yes (Other)
  Sender: FDA-Public Use
  Company Number: US-PFIZER INC-2007072278

PATIENT
  Sex: Female
  Weight: 90.7 kg

DRUGS (6)
  1. LYRICA [Suspect]
     Indication: MYELOPATHY
  2. BACLOFEN [Concomitant]
  3. LIPITOR [Concomitant]
  4. BENICAR HCT [Concomitant]
  5. LOPRESSOR [Concomitant]
  6. NAPROXEN [Concomitant]

REACTIONS (3)
  - MUSCLE TIGHTNESS [None]
  - OEDEMA PERIPHERAL [None]
  - SKIN LESION [None]
